FAERS Safety Report 19384503 (Version 1)
Quarter: 2021Q2

REPORT INFORMATION
  Report Type: Spontaneous
  Country: BR (occurrence: BR)
  Receive Date: 20210607
  Receipt Date: 20210607
  Transmission Date: 20210717
  Serious: Yes (Other)
  Sender: FDA-Public Use
  Company Number: BR-MALLINCKRODT PHARMACEUTICALS-T202102525

PATIENT
  Sex: Female
  Weight: 77 kg

DRUGS (11)
  1. BROMOPRIDE [Concomitant]
     Active Substance: BROMOPRIDE
     Indication: GASTROINTESTINAL DISORDER
     Dosage: UNK
     Route: 065
  2. AMITIZA [Suspect]
     Active Substance: LUBIPROSTONE
     Indication: CONSTIPATION
     Dosage: 24 MICROGRAM, BID
     Dates: start: 202105
  3. ATENSINA [Concomitant]
     Active Substance: CLONIDINE
     Indication: HYPERTENSION
     Dosage: UNK
     Route: 065
  4. HUMALOG [Concomitant]
     Active Substance: INSULIN LISPRO
     Indication: DIABETES MELLITUS
     Dosage: UNK
     Route: 065
  5. SPIRONOLACTONE. [Concomitant]
     Active Substance: SPIRONOLACTONE
     Indication: HYPERTENSION
     Dosage: UNK
     Route: 065
  6. ROSUVASTATIN. [Concomitant]
     Active Substance: ROSUVASTATIN
     Indication: HYPERTENSION
     Dosage: UNK
     Route: 065
  7. LANTUS [Concomitant]
     Active Substance: INSULIN GLARGINE
     Indication: TYPE 1 DIABETES MELLITUS
     Dosage: UNK
     Route: 065
  8. NESINA [Suspect]
     Active Substance: ALOGLIPTIN BENZOATE
     Indication: PANCREATITIS CHRONIC
     Dosage: UNK, QID
     Route: 065
  9. DIPYRONE [Concomitant]
     Active Substance: DIPYRONE
     Indication: PAIN
     Dosage: UNK
     Route: 065
  10. VERTIZINE D [Concomitant]
     Active Substance: DIHYDROERGOCRISTINE
     Indication: MIGRAINE
     Dosage: UNK
     Route: 065
  11. VERTIZINE D [Concomitant]
     Active Substance: DIHYDROERGOCRISTINE
     Indication: LABYRINTHITIS

REACTIONS (3)
  - Nausea [Unknown]
  - Pancreatitis [Unknown]
  - Off label use [Unknown]
